FAERS Safety Report 9769477 (Version 2)
Quarter: 2014Q3

REPORT INFORMATION
  Report Type: Spontaneous
  Country: US (occurrence: US)
  Receive Date: 20131218
  Receipt Date: 20140710
  Transmission Date: 20150326
  Serious: Yes (Other)
  Sender: FDA-Public Use
  Company Number: US-JNJFOC-20131210496

PATIENT
  Sex: Male

DRUGS (1)
  1. RISPERDAL [Suspect]
     Active Substance: RISPERIDONE
     Indication: PRODUCT USED FOR UNKNOWN INDICATION
     Route: 048
     Dates: start: 201010, end: 201012

REACTIONS (5)
  - Gynaecomastia [Not Recovered/Not Resolved]
  - Tardive dyskinesia [Unknown]
  - Injury [Not Recovered/Not Resolved]
  - Weight increased [Unknown]
  - Dysphagia [Unknown]
